FAERS Safety Report 9030656 (Version 1)
Quarter: 2013Q1

REPORT INFORMATION
  Report Type: Spontaneous
  Country: US (occurrence: US)
  Receive Date: 20130123
  Receipt Date: 20130123
  Transmission Date: 20140127
  Serious: No
  Sender: FDA-Public Use
  Company Number: US-009507513-1301USA008884

PATIENT
  Sex: Male

DRUGS (4)
  1. PEGINTRON [Suspect]
     Indication: HEPATITIS C
     Dosage: UNK
     Route: 058
     Dates: start: 20080111, end: 20081212
  2. PEGINTRON [Suspect]
     Dosage: UNK
     Route: 058
     Dates: start: 20130104
  3. RIBAVIRIN [Suspect]
     Indication: HEPATITIS C
     Dosage: UNK
     Route: 048
     Dates: start: 20080111, end: 20081212
  4. RIBAVIRIN [Suspect]
     Dosage: UNK
     Route: 048
     Dates: start: 20130104

REACTIONS (1)
  - Drug ineffective [Unknown]
